FAERS Safety Report 7639384-X (Version None)
Quarter: 2011Q3

REPORT INFORMATION
  Report Type: 
  Country: None (occurrence: None)
  Receive Date: 20110727
  Receipt Date: 20110718
  Transmission Date: 20111222
  Serious: Yes (Death, Hospitalization)
  Sender: FDA-Public Use
  Company Number: NL-SANOFI-AVENTIS-2011SA000427

PATIENT
  Age: 78 Year
  Sex: Male
  Weight: 80 kg

DRUGS (8)
  1. BLINDED THERAPY [Suspect]
     Indication: PROSTATE CANCER
     Route: 048
     Dates: start: 20101130, end: 20101214
  2. ACETAMINOPHEN [Concomitant]
     Indication: PAIN
     Route: 048
  3. IBUPROFEN [Concomitant]
     Indication: PAIN
     Route: 048
  4. ASCAL [Concomitant]
     Indication: PROPHYLAXIS
     Dates: start: 20101130, end: 20101214
  5. MICARDIS [Concomitant]
     Route: 048
  6. FENTANYL [Concomitant]
     Indication: PAIN
  7. DOCETAXEL [Suspect]
     Indication: PROSTATE CANCER
     Route: 041
     Dates: start: 20101130, end: 20101130
  8. PREDNISONE [Suspect]
     Indication: PROSTATE CANCER
     Dates: start: 20101130, end: 20101214

REACTIONS (3)
  - WEIGHT DECREASED [None]
  - DECREASED APPETITE [None]
  - GENERAL PHYSICAL HEALTH DETERIORATION [None]
